FAERS Safety Report 5048838-4 (Version None)
Quarter: 2006Q3

REPORT INFORMATION
  Report Type: 
  Country: None (occurrence: None)
  Receive Date: 20060706
  Receipt Date: 20060626
  Transmission Date: 20061208
  Serious: Yes (Death, Hospitalization)
  Sender: FDA-Public Use
  Company Number: 104266

PATIENT
  Age: 66 Year
  Sex: Female

DRUGS (6)
  1. MABTHERA (RITUXIMAB) [Suspect]
     Indication: B-CELL LYMPHOMA
     Dosage: 375 MG/M2, SINGLE, INTRAVENOUS
     Route: 042
     Dates: start: 20020205, end: 20020205
  2. LORAZEPAM [Concomitant]
  3. CITALOPRAM HYDROBROMIDE [Concomitant]
  4. ETOPOSIDE [Concomitant]
  5. CYTARABINE [Concomitant]
  6. MELPHALAN (MELPHALAN) [Concomitant]

REACTIONS (6)
  - HEPATIC FAILURE [None]
  - HEPATITIS ACUTE [None]
  - HEPATITIS CHOLESTATIC [None]
  - HEPATITIS TOXIC [None]
  - PNEUMONIA [None]
  - PSEUDOMONAL SEPSIS [None]
